FAERS Safety Report 7335758-5 (Version None)
Quarter: 2011Q1

REPORT INFORMATION
  Report Type: 
  Country: None (occurrence: None)
  Receive Date: 20110307
  Receipt Date: 20100331
  Transmission Date: 20110831
  Serious: No
  Sender: FDA-Public Use
  Company Number: US-BAYER-201019141NA

PATIENT
  Sex: Female

DRUGS (1)
  1. MIRENA [Suspect]
     Dosage: 20 MCG/24HR, CONT
     Route: 015

REACTIONS (6)
  - NAUSEA [None]
  - MEDICAL DEVICE DISCOMFORT [None]
  - MENORRHAGIA [None]
  - MALAISE [None]
  - DRUG EXPOSURE VIA BREAST MILK [None]
  - UTERINE SPASM [None]
